FAERS Safety Report 9408080 (Version 1)
Quarter: 2013Q3

REPORT INFORMATION
  Report Type: Spontaneous
  Country: IT (occurrence: None)
  Receive Date: 20130716
  Receipt Date: 20130716
  Transmission Date: 20140515
  Serious: Yes (Hospitalization)
  Sender: FDA-Public Use
  Company Number: AUR-APL-2013-05845

PATIENT
  Age: 64 Year
  Sex: Female

DRUGS (2)
  1. AMOXICILLIN [Suspect]
     Indication: PYREXIA
  2. CEFTRIAXONE (CEFTRIAXONE) [Suspect]
     Indication: PYREXIA

REACTIONS (1)
  - No therapeutic response [None]
